FAERS Safety Report 24385917 (Version 1)
Quarter: 2024Q4

REPORT INFORMATION
  Report Type: Spontaneous
  Country: US (occurrence: US)
  Receive Date: 20241001
  Receipt Date: 20241001
  Transmission Date: 20250114
  Serious: Yes (Other)
  Sender: ELI LILLY AND CO
  Company Number: US-ELI_LILLY_AND_COMPANY-US202409013416

PATIENT
  Age: 61 Year
  Sex: Male

DRUGS (5)
  1. TRULICITY [Suspect]
     Active Substance: DULAGLUTIDE
     Indication: Product used for unknown indication
     Dosage: UNK UNK, UNKNOWN
     Route: 065
     Dates: start: 2021
  2. ORGOVYX [Suspect]
     Active Substance: RELUGOLIX
     Indication: Neoplasm malignant
     Dosage: 120 MG, DAILY
     Route: 048
     Dates: start: 20240522
  3. WEGOVY [Suspect]
     Active Substance: SEMAGLUTIDE
     Indication: Product used for unknown indication
     Dosage: UNK UNK, UNKNOWN
     Route: 065
  4. ABIRATERONE ACETATE [Concomitant]
     Active Substance: ABIRATERONE ACETATE
     Indication: Product used for unknown indication
     Dosage: UNK UNK, UNKNOWN
     Route: 065
     Dates: start: 20240522
  5. PREDNISONE [Concomitant]
     Active Substance: PREDNISONE
     Indication: Neoplasm prostate
     Dosage: UNK UNK, UNKNOWN
     Route: 065
     Dates: start: 20240522

REACTIONS (7)
  - Rib fracture [Unknown]
  - Diabetes mellitus inadequate control [Recovering/Resolving]
  - Road traffic accident [Unknown]
  - Weight decreased [Unknown]
  - Blood testosterone decreased [Unknown]
  - Mood swings [Unknown]
  - Hot flush [Recovering/Resolving]
